FAERS Safety Report 13905448 (Version 1)
Quarter: 2017Q3

REPORT INFORMATION
  Report Type: Spontaneous
  Country: DE (occurrence: DE)
  Receive Date: 20170825
  Receipt Date: 20170825
  Transmission Date: 20171127
  Serious: Yes (Congenital Anomaly)
  Sender: FDA-Public Use
  Company Number: GXKR2017DE004143

PATIENT
  Age: 1 Day
  Sex: Male
  Weight: 3.97 kg

DRUGS (11)
  1. SERTRALINE [Suspect]
     Active Substance: SERTRALINE HYDROCHLORIDE
     Indication: FOETAL EXPOSURE DURING PREGNANCY
     Dosage: MATERNAL DOSE: 50 MG QD
     Route: 064
     Dates: start: 20160414, end: 20170122
  2. NYSTATIN. [Concomitant]
     Active Substance: NYSTATIN
     Indication: FOETAL EXPOSURE DURING PREGNANCY
     Dosage: MATERNAL DOSE
     Route: 064
  3. OXYTOCIN. [Concomitant]
     Active Substance: OXYTOCIN
     Indication: FOETAL EXPOSURE DURING PREGNANCY
     Dosage: MATERNAL DOSE
     Route: 064
     Dates: start: 20170122, end: 20170122
  4. FEMIBION [Concomitant]
     Active Substance: VITAMINS
     Indication: FOETAL EXPOSURE DURING PREGNANCY
     Dosage: MATERNAL DOSE: 0.8 (MG/D (BIS 0.4))
     Route: 064
     Dates: start: 20160414, end: 20160706
  5. EFEROX [Concomitant]
     Active Substance: LEVOTHYROXINE SODIUM
     Indication: FOETAL EXPOSURE DURING PREGNANCY
     Dosage: MATERNAL DOSE: 112 UG QD
     Route: 064
     Dates: start: 20160414, end: 20170122
  6. BALDRIAN-DISPERT [Concomitant]
     Indication: FOETAL EXPOSURE DURING PREGNANCY
     Dosage: MATERNAL DOSE: 45 MG QD
     Route: 064
  7. WICK INHALIERSTIFT N [Concomitant]
     Indication: FOETAL EXPOSURE DURING PREGNANCY
     Dosage: UNK
     Route: 064
     Dates: start: 20160609, end: 20160609
  8. BEPANTHEN [Concomitant]
     Active Substance: DEXPANTHENOL
     Indication: FOETAL EXPOSURE DURING PREGNANCY
     Dosage: MATERNAL DOSE
     Route: 064
  9. VITAMIN D [Concomitant]
     Active Substance: CHOLECALCIFEROL
     Indication: FOETAL EXPOSURE DURING PREGNANCY
     Dosage: MATERNAL DOSE: 1000 IU QD
     Route: 064
  10. LEVETIRACETAM. [Suspect]
     Active Substance: LEVETIRACETAM
     Indication: FOETAL EXPOSURE DURING PREGNANCY
     Dosage: MATERNAL DOSE: 500 MG BID
     Route: 064
     Dates: start: 20160414, end: 20170122
  11. INIMUR MYKO [Concomitant]
     Indication: FOETAL EXPOSURE DURING PREGNANCY
     Dosage: UNK
     Route: 064

REACTIONS (1)
  - Cerebral haemorrhage neonatal [Unknown]

NARRATIVE: CASE EVENT DATE: 20170122
